FAERS Safety Report 15481907 (Version 1)
Quarter: 2018Q4

REPORT INFORMATION
  Report Type: Spontaneous
  Country: US (occurrence: US)
  Receive Date: 20181003
  Receipt Date: 20181003
  Transmission Date: 20190205
  Serious: Yes (Death)
  Sender: FDA-Public Use
  Company Number: None

PATIENT
  Age: 60 Year
  Sex: Male
  Weight: 112.5 kg

DRUGS (1)
  1. AMLODIPINE BESYLATE 10MG [Suspect]
     Active Substance: AMLODIPINE BESYLATE
     Indication: HYPERTENSION
     Dosage: ?          QUANTITY:1 DF DOSAGE FORM;?
     Route: 048

REACTIONS (9)
  - Somnolence [None]
  - Dyskinesia [None]
  - Nausea [None]
  - Fatigue [None]
  - Arrhythmia [None]
  - Palpitations [None]
  - Tremor [None]
  - Myocardial infarction [None]
  - Dizziness [None]

NARRATIVE: CASE EVENT DATE: 20180925
